FAERS Safety Report 18302924 (Version 2)
Quarter: 2021Q2

REPORT INFORMATION
  Report Type: Report from Study
  Country: CA (occurrence: CA)
  Receive Date: 20200924
  Receipt Date: 20210616
  Transmission Date: 20210717
  Serious: Yes (Hospitalization)
  Sender: FDA-Public Use
  Company Number: CA-ROCHE-2680216

PATIENT
  Age: 69 Year
  Sex: Male

DRUGS (4)
  1. DEXAMETHASONE. [Suspect]
     Active Substance: DEXAMETHASONE
     Indication: HAEMATOLOGICAL MALIGNANCY
     Route: 048
     Dates: start: 20200903, end: 20200907
  2. GEMCITABINE. [Suspect]
     Active Substance: GEMCITABINE
     Indication: HAEMATOLOGICAL MALIGNANCY
     Dosage: DAY 1,8
     Route: 042
     Dates: start: 20200904, end: 20200904
  3. CISPLATIN. [Suspect]
     Active Substance: CISPLATIN
     Indication: HAEMATOLOGICAL MALIGNANCY
     Dosage: DAY 1
     Route: 042
     Dates: start: 20200904, end: 20200904
  4. RITUXIMAB. [Suspect]
     Active Substance: RITUXIMAB
     Indication: HAEMATOLOGICAL MALIGNANCY
     Dosage: DAY 1
     Route: 042
     Dates: start: 20200903, end: 20200903

REACTIONS (1)
  - Dehydration [Recovered/Resolved]

NARRATIVE: CASE EVENT DATE: 20200911
